FAERS Safety Report 5197127-6 (Version None)
Quarter: 2007Q1

REPORT INFORMATION
  Report Type: 
  Country: None (occurrence: None)
  Receive Date: 20070103
  Receipt Date: 20070102
  Transmission Date: 20070707
  Serious: Yes (Other)
  Sender: FDA-Public Use
  Company Number: US-GLAXOSMITHKLINE-A0630645A

PATIENT
  Age: 55 Year
  Sex: Male
  Weight: 81.8 kg

DRUGS (5)
  1. ADVAIR DISKUS 100/50 [Suspect]
     Indication: CHRONIC OBSTRUCTIVE PULMONARY DISEASE
     Dosage: 1PUFF TWICE PER DAY
     Route: 055
     Dates: start: 20061101, end: 20061101
  2. ACIPHEX [Concomitant]
     Indication: GASTROOESOPHAGEAL REFLUX DISEASE
     Dosage: 20MG PER DAY
     Route: 048
  3. HYZAAR [Concomitant]
     Indication: HYPERTENSION
     Dosage: 1TAB PER DAY
     Route: 048
  4. FLONASE [Concomitant]
     Indication: RHINITIS ALLERGIC
     Route: 045
  5. VICOPROFEN [Concomitant]

REACTIONS (6)
  - HERPES SIMPLEX [None]
  - MEDICATION ERROR [None]
  - MOUTH ULCERATION [None]
  - ORAL CANDIDIASIS [None]
  - ORAL PAIN [None]
  - TONGUE DISORDER [None]
